FAERS Safety Report 9972424 (Version 1)
Quarter: 2014Q1

REPORT INFORMATION
  Report Type: Report from Study
  Country: US (occurrence: US)
  Receive Date: 20140306
  Receipt Date: 20140306
  Transmission Date: 20141002
  Serious: No
  Sender: FDA-Public Use
  Company Number: US-ABBVIE-13P-163-1153757-00

PATIENT
  Age: 46 Year
  Sex: Female

DRUGS (22)
  1. HUMIRA [Suspect]
     Indication: RHEUMATOID ARTHRITIS
     Dates: start: 201208, end: 201302
  2. HUMIRA [Suspect]
     Dosage: WEEKLY
     Dates: start: 201302
  3. MS CONTIN [Concomitant]
     Indication: PAIN
     Route: 048
  4. PERCOCET [Concomitant]
     Indication: PAIN
     Dosage: 10/325 MG
  5. AMITRIPTYLINE [Concomitant]
     Indication: INSOMNIA
     Dosage: AT BEDTIME
  6. ADVAIR DISKUS [Concomitant]
     Indication: ASTHMA
     Dosage: 2 PUFFS DAILY, 250/50 MCG
  7. ALBUTEROL INHALER [Concomitant]
     Indication: ASTHMA
  8. BYSTOLIC [Concomitant]
     Indication: BLOOD PRESSURE
     Dosage: 1 AT BEDTIME
  9. CALCIUM CARBONATE [Concomitant]
     Indication: PRODUCT USED FOR UNKNOWN INDICATION
     Dosage: 2 IN AM AND 1 IN PM
  10. VITAMIN D3 [Concomitant]
     Indication: PRODUCT USED FOR UNKNOWN INDICATION
  11. CYCLOBENAZPRINE [Concomitant]
     Indication: PRODUCT USED FOR UNKNOWN INDICATION
     Dosage: AS NEEDED
  12. VOLTRAGEL CREAM [Concomitant]
     Indication: ANALGESIC THERAPY
  13. FOLIC ACID [Concomitant]
     Indication: PRODUCT USED FOR UNKNOWN INDICATION
     Dosage: 1 MG DAILY
  14. GABAPENTIN [Concomitant]
     Indication: NEURALGIA
  15. HYDROCORTISONE BUTYRATE CREAM [Concomitant]
     Indication: DRY SKIN
  16. HYDROCORTISONE BUTYRATE CREAM [Concomitant]
     Indication: DRY MOUTH
  17. PLAQUENIL [Concomitant]
     Indication: RHEUMATOID ARTHRITIS
  18. MOBIC [Concomitant]
     Indication: PAIN
     Dosage: AT BEDTIME
  19. METHOTREXATE [Concomitant]
     Indication: RHEUMATOID ARTHRITIS
     Dosage: 6 PILLS ONCE WEEKLY
  20. VITAMIN E [Concomitant]
     Indication: PRODUCT USED FOR UNKNOWN INDICATION
     Dosage: 400 IU DAILY
  21. MULTIVITAMIN WITH MINERALS [Concomitant]
     Indication: PRODUCT USED FOR UNKNOWN INDICATION
     Dosage: DAILY
  22. ZINC [Concomitant]
     Indication: PRODUCT USED FOR UNKNOWN INDICATION

REACTIONS (4)
  - Pain [Not Recovered/Not Resolved]
  - Drug dose omission [Not Recovered/Not Resolved]
  - Device malfunction [Not Recovered/Not Resolved]
  - Asthenia [Not Recovered/Not Resolved]
